FAERS Safety Report 7260777-7 (Version None)
Quarter: 2011Q1

REPORT INFORMATION
  Report Type: 
  Country: None (occurrence: None)
  Receive Date: 20110130
  Receipt Date: 20101227
  Transmission Date: 20110831
  Serious: No
  Sender: FDA-Public Use
  Company Number: US-ABBOTT-10P-163-0693614-00

PATIENT
  Age: 60 Year
  Sex: Male

DRUGS (8)
  1. METFORMIN [Concomitant]
     Indication: PRODUCT USED FOR UNKNOWN INDICATION
  2. ALLOPURINOL [Concomitant]
     Indication: PRODUCT USED FOR UNKNOWN INDICATION
  3. HUMIRA [Suspect]
     Dates: start: 20110107
  4. ANTIBIOTIC [Concomitant]
     Indication: TUBERCULOSIS
  5. METHOTREXATE [Concomitant]
     Indication: PRODUCT USED FOR UNKNOWN INDICATION
  6. LISINOPRIL [Concomitant]
     Indication: RENAL DISORDER
  7. HUMIRA [Suspect]
     Indication: RHEUMATOID ARTHRITIS
     Dates: start: 20100801, end: 20101203
  8. FOLIC ACID [Concomitant]
     Indication: PRODUCT USED FOR UNKNOWN INDICATION

REACTIONS (6)
  - RHEUMATOID ARTHRITIS [None]
  - COUGH [None]
  - WEIGHT DECREASED [None]
  - RESPIRATORY TRACT CONGESTION [None]
  - SPUTUM DISCOLOURED [None]
  - NASOPHARYNGITIS [None]
